FAERS Safety Report 6768141-1 (Version None)
Quarter: 2010Q2

REPORT INFORMATION
  Report Type: 
  Country: None (occurrence: None)
  Receive Date: 20100614
  Receipt Date: 20100608
  Transmission Date: 20101027
  Serious: Yes (Other)
  Sender: FDA-Public Use
  Company Number: SE-PFIZER INC-2010071366

PATIENT
  Age: 29 Year
  Sex: Female

DRUGS (2)
  1. SYNAREL [Suspect]
     Indication: IN VITRO FERTILISATION
     Dosage: UNK
  2. PUREGON [Suspect]
     Dosage: UNK

REACTIONS (1)
  - VISION BLURRED [None]
